FAERS Safety Report 7430473-1 (Version None)
Quarter: 2011Q2

REPORT INFORMATION
  Report Type: 
  Country: None (occurrence: None)
  Receive Date: 20110421
  Receipt Date: 20110106
  Transmission Date: 20111010
  Serious: No
  Sender: FDA-Public Use
  Company Number: US-ASTRAZENECA-2011SE00930

PATIENT
  Age: 74 Year
  Sex: Female

DRUGS (4)
  1. MOTRIN [Concomitant]
  2. TOPROL-XL [Suspect]
     Route: 048
     Dates: start: 20100601, end: 20100901
  3. ZESTRIL [Concomitant]
  4. CARDURA [Interacting]
     Indication: BLADDER DISORDER
     Dosage: BID

REACTIONS (6)
  - URINARY TRACT INFECTION [None]
  - DRUG INTERACTION [None]
  - EUPHORIC MOOD [None]
  - OLIGURIA [None]
  - DYSURIA [None]
  - DRY MOUTH [None]
